FAERS Safety Report 13569159 (Version 1)
Quarter: 2017Q2

REPORT INFORMATION
  Report Type: Spontaneous
  Country: DE (occurrence: DE)
  Receive Date: 20170522
  Receipt Date: 20170522
  Transmission Date: 20170830
  Serious: Yes (Congenital Anomaly)
  Sender: FDA-Public Use
  Company Number: DE-TEVA-768159GER

PATIENT
  Age: 1 Day
  Sex: Male
  Weight: 3.43 kg

DRUGS (4)
  1. PAROXETIN [Suspect]
     Active Substance: PAROXETINE HYDROCHLORIDE
     Indication: DEPRESSION
     Dosage: 20 MILLIGRAM DAILY;
     Route: 064
     Dates: start: 20160701, end: 20161123
  2. FOLSAEURE [Concomitant]
     Active Substance: FOLIC ACID
     Indication: PROPHYLAXIS OF NEURAL TUBE DEFECT
     Route: 064
  3. ERYTHROMYCIN. [Concomitant]
     Active Substance: ERYTHROMYCIN
     Indication: CHLAMYDIAL INFECTION
     Dosage: 1500 MILLIGRAM DAILY;
     Route: 064
  4. MONO-EMBOLEX [Concomitant]
     Active Substance: CERTOPARIN SODIUM
     Indication: FACTOR V LEIDEN MUTATION
     Dosage: 3000 IU (INTERNATIONAL UNIT) DAILY;
     Route: 064

REACTIONS (3)
  - Patent ductus arteriosus [Recovered/Resolved]
  - Persistent foetal circulation [Recovered/Resolved]
  - Tricuspid valve incompetence [Recovered/Resolved]

NARRATIVE: CASE EVENT DATE: 20161123
